FAERS Safety Report 7596065-9 (Version None)
Quarter: 2011Q3

REPORT INFORMATION
  Report Type: 
  Country: None (occurrence: None)
  Receive Date: 20110707
  Receipt Date: 20110704
  Transmission Date: 20111222
  Serious: Yes (Death, Other)
  Sender: FDA-Public Use
  Company Number: PHHY2011CA59421

PATIENT
  Sex: Male

DRUGS (2)
  1. CLOZAPINE [Suspect]
     Indication: SCHIZOPHRENIA
     Dates: start: 19920804
  2. CLOZAPINE [Suspect]
     Dates: start: 20110616

REACTIONS (2)
  - PSYCHOTIC DISORDER [None]
  - DEATH [None]
